FAERS Safety Report 5840575-9 (Version None)
Quarter: 2008Q3

REPORT INFORMATION
  Report Type: 
  Country: None (occurrence: None)
  Receive Date: 20080730
  Receipt Date: 20080703
  Transmission Date: 20090109
  Serious: No
  Sender: FDA-Public Use
  Company Number: PHEH2008US04603

PATIENT
  Sex: Female

DRUGS (1)
  1. TEKTURNA [Suspect]

REACTIONS (3)
  - EAR DISORDER [None]
  - FEELING ABNORMAL [None]
  - INNER EAR DISORDER [None]
